FAERS Safety Report 13999991 (Version 1)
Quarter: 2017Q3

REPORT INFORMATION
  Report Type: Spontaneous
  Country: GB (occurrence: GB)
  Receive Date: 20170922
  Receipt Date: 20170922
  Transmission Date: 20171128
  Serious: Yes (Other)
  Sender: FDA-Public Use
  Company Number: GB-BAUSCH-BL-2017-027712

PATIENT
  Age: 24 Year
  Sex: Male

DRUGS (1)
  1. TETRACAINE HYDROCHLORIDE. [Suspect]
     Active Substance: TETRACAINE HYDROCHLORIDE
     Indication: CULTURE POSITIVE
     Dosage: 3 DF TOTAL
     Route: 047
     Dates: start: 20170909, end: 20170909

REACTIONS (1)
  - Mydriasis [Unknown]
